FAERS Safety Report 6150933-3 (Version None)
Quarter: 2009Q2

REPORT INFORMATION
  Report Type: 
  Country: None (occurrence: None)
  Receive Date: 20090409
  Receipt Date: 20090409
  Transmission Date: 20091009
  Serious: Yes (Other)
  Sender: FDA-Public Use
  Company Number: US-PFIZER INC-2008099791

PATIENT
  Sex: Female
  Weight: 72.727 kg

DRUGS (4)
  1. CHANTIX [Suspect]
     Indication: SMOKING CESSATION THERAPY
     Dates: start: 20070801
  2. KLONOPIN [Suspect]
     Indication: ANXIETY
     Dosage: PRN
     Dates: end: 20071001
  3. DEPO-PROVERA [Concomitant]
  4. DROSPIRENONE + ETHINYL ESTRADIOL [Concomitant]

REACTIONS (1)
  - HALLUCINATION, VISUAL [None]
